FAERS Safety Report 24835321 (Version 2)
Quarter: 2025Q1

REPORT INFORMATION
  Report Type: Spontaneous
  Country: US (occurrence: US)
  Receive Date: 20250113
  Receipt Date: 20250115
  Transmission Date: 20250409
  Serious: Yes (Hospitalization, Other)
  Sender: AUROBINDO
  Company Number: US-AUROBINDO-AUR-APL-2025-001803

PATIENT
  Age: 48 Year
  Sex: Female

DRUGS (2)
  1. SUMATRIPTAN [Suspect]
     Active Substance: SUMATRIPTAN
     Indication: Migraine
     Route: 065
  2. COBIMETINIB [Concomitant]
     Active Substance: COBIMETINIB
     Indication: Migraine
     Route: 065

REACTIONS (2)
  - Enterocolitis haemorrhagic [Unknown]
  - Colitis ischaemic [Unknown]
